FAERS Safety Report 9166131 (Version 1)
Quarter: 2013Q1

REPORT INFORMATION
  Report Type: Spontaneous
  Country: IT (occurrence: IT)
  Receive Date: 20130315
  Receipt Date: 20130315
  Transmission Date: 20140127
  Serious: Yes (Life-Threatening)
  Sender: FDA-Public Use
  Company Number: IT-ASTRAZENECA-2013SE16319

PATIENT
  Age: 27798 Day
  Sex: Female

DRUGS (7)
  1. SEROQUEL [Suspect]
     Indication: PSYCHOMOTOR HYPERACTIVITY
     Route: 048
     Dates: start: 20130306, end: 20130306
  2. LANSOPRAZOLE [Concomitant]
  3. ALLOPURINOL [Concomitant]
  4. ALPRAZOLAM [Concomitant]
  5. ENOXAPARIN [Concomitant]
  6. CONGESCOR [Concomitant]
  7. CORDARONE [Concomitant]

REACTIONS (1)
  - Hepatitis acute [Recovering/Resolving]
